FAERS Safety Report 25092186 (Version 1)
Quarter: 2025Q1

REPORT INFORMATION
  Report Type: Spontaneous
  Country: SE (occurrence: SE)
  Receive Date: 20250319
  Receipt Date: 20250319
  Transmission Date: 20250409
  Serious: Yes (Other)
  Sender: BOEHRINGER INGELHEIM
  Company Number: SE-BoehringerIngelheim-2025-BI-014645

PATIENT
  Sex: Female

DRUGS (1)
  1. PRAMIPEXOLE [Suspect]
     Active Substance: PRAMIPEXOLE
     Indication: Restless legs syndrome

REACTIONS (3)
  - Suicidal ideation [Unknown]
  - Gambling [Recovered/Resolved]
  - Extra dose administered [Unknown]
